FAERS Safety Report 18895984 (Version 1)
Quarter: 2021Q1

REPORT INFORMATION
  Report Type: Other
  Country: DE (occurrence: DE)
  Receive Date: 20210216
  Receipt Date: 20210216
  Transmission Date: 20210420
  Serious: Yes (Other)
  Sender: FDA-Public Use
  Company Number: DE-LUPIN PHARMACEUTICALS INC.-2021-01610

PATIENT
  Age: 1 Day
  Sex: Female
  Weight: 3.51 kg

DRUGS (9)
  1. PARACETAMOL [Concomitant]
     Active Substance: ACETAMINOPHEN
     Indication: RHEUMATOID ARTHRITIS
     Dosage: 500 (MG/D (BEI BEDARF))/ IN TOTAL, NO MORE HAN 25 TABLETS DURING THE WHOLE PREGNANCY
     Route: 064
  2. LAMOTRIGINE. [Suspect]
     Active Substance: LAMOTRIGINE
     Indication: EPILEPSY
     Dosage: 2000 (MG/D (UP TO 450) ])
     Route: 064
     Dates: start: 20181209, end: 20190826
  3. L THYROXIN [Concomitant]
     Active Substance: LEVOTHYROXINE SODIUM
     Indication: HYPOTHYROIDISM
     Dosage: 50 MICROGRAM, QD
     Route: 064
     Dates: start: 20181209, end: 20190826
  4. AGYRAX [MECLOZINE HYDROCHLORIDE] [Concomitant]
     Indication: MORNING SICKNESS
     Dosage: 100 MILLIGRAM, QD
     Route: 064
  5. PREDNISOLON [PREDNISOLONE] [Concomitant]
     Active Substance: PREDNISOLONE
     Indication: RHEUMATOID ARTHRITIS
     Dosage: 10 (MG/D (BIS 5 MG/D))
     Route: 064
     Dates: start: 20181209, end: 20190826
  6. FRISIUM [Suspect]
     Active Substance: CLOBAZAM
     Indication: EPILEPSY
     Dosage: 20 [MG/D (UP TO 5) ]/ FIRST 5 MG/, THEN 10 MG/D. FROM GW 35: 20 MG/D
     Route: 064
     Dates: start: 20190801, end: 20190826
  7. CIMZIA [Concomitant]
     Active Substance: CERTOLIZUMAB PEGOL
     Indication: RHEUMATOID ARTHRITIS
     Dosage: 200 MG/2WK
     Route: 064
     Dates: start: 20181209, end: 20190826
  8. PANTOPRAZOLE [Concomitant]
     Active Substance: PANTOPRAZOLE
     Indication: GASTRITIS PROPHYLAXIS
     Dosage: 40 (MG/D (BEI BEDARF)), AS NECESSARY
     Route: 064
  9. IBUPROFEN. [Concomitant]
     Active Substance: IBUPROFEN
     Indication: RHEUMATOID ARTHRITIS
     Dosage: IN TOTAL, 10 TABLES DURING PREGNANCY
     Route: 064

REACTIONS (3)
  - Floppy infant [Recovered/Resolved]
  - Myoclonus [Unknown]
  - Foetal exposure during pregnancy [Unknown]

NARRATIVE: CASE EVENT DATE: 20190826
